FAERS Safety Report 9658006 (Version 2)
Quarter: 2013Q4

REPORT INFORMATION
  Report Type: Spontaneous
  Country: CA (occurrence: None)
  Receive Date: 20131029
  Receipt Date: 20131223
  Transmission Date: 20140711
  Serious: Yes (Hospitalization)
  Sender: FDA-Public Use
  Company Number: CA-013367

PATIENT
  Age: 73 Year
  Sex: Female
  Weight: 72.58 kg

DRUGS (2)
  1. PICO-SALAX [Suspect]
     Indication: PRODUCT USED FOR UNKNOWN INDICATION
  2. DULCOLAX [Suspect]
     Indication: PRODUCT USED FOR UNKNOWN INDICATION

REACTIONS (10)
  - Asthenia [None]
  - Chest discomfort [None]
  - Confusional state [None]
  - Nausea [None]
  - Hyponatraemia [None]
  - Hypocalcaemia [None]
  - Dyspnoea [None]
  - Tremor [None]
  - Vomiting [None]
  - Dehydration [None]
